FAERS Safety Report 16079397 (Version 7)
Quarter: 2019Q3

REPORT INFORMATION
  Report Type: Spontaneous
  Country: PT (occurrence: PT)
  Receive Date: 20190315
  Receipt Date: 20190719
  Transmission Date: 20191004
  Serious: Yes (Hospitalization, Disabling, Other)
  Sender: FDA-Public Use
  Company Number: PT-MYLANLABS-2019M1024180

PATIENT
  Age: 55 Year
  Sex: Male

DRUGS (5)
  1. NAPROXEN. [Suspect]
     Active Substance: NAPROXEN
     Indication: ARTHRALGIA
     Dosage: UNK,IN SOS
     Route: 065
     Dates: start: 201712
  2. METHOTREXATE. [Suspect]
     Active Substance: METHOTREXATE
     Indication: ARTHRALGIA
     Dosage: 20 MG, QW
     Route: 048
     Dates: end: 2012
  3. ETANERCEPT [Suspect]
     Active Substance: ETANERCEPT
     Indication: ARTHRALGIA
     Dosage: UNK
     Route: 058
     Dates: end: 2012
  4. DICLOFENAC [Suspect]
     Active Substance: DICLOFENAC
     Indication: ARTHRALGIA
     Dosage: UNK,IN SOS
     Route: 065
     Dates: start: 201712
  5. ETANERCEPT [Suspect]
     Active Substance: ETANERCEPT
     Indication: PSORIASIS
     Dosage: UNK
     Route: 065

REACTIONS (13)
  - Secondary amyloidosis [Unknown]
  - Oedema peripheral [Unknown]
  - Hypoproteinaemia [Unknown]
  - Proteinuria [Unknown]
  - Treatment noncompliance [Unknown]
  - Condition aggravated [Unknown]
  - Hypoalbuminaemia [Unknown]
  - Microalbuminuria [Unknown]
  - Amyloidosis [Unknown]
  - Periorbital oedema [Unknown]
  - Nephrotic syndrome [Unknown]
  - Hypertriglyceridaemia [Unknown]
  - Hypercholesterolaemia [Unknown]

NARRATIVE: CASE EVENT DATE: 201712
